FAERS Safety Report 14517580 (Version 4)
Quarter: 2020Q4

REPORT INFORMATION
  Report Type: Other
  Country: IT (occurrence: IT)
  Receive Date: 20180212
  Receipt Date: 20201005
  Transmission Date: 20210113
  Serious: Yes (Death, Other)
  Sender: FDA-Public Use
  Company Number: IT-ROCHE-2070872

PATIENT

DRUGS (3)
  1. RITUXIMAB. [Suspect]
     Active Substance: RITUXIMAB
     Dosage: FROM THE SECOND COURSE ONWARDS
     Route: 042
  2. BENDAMUSTINE [Suspect]
     Active Substance: BENDAMUSTINE
     Indication: CHRONIC LYMPHOCYTIC LEUKAEMIA
     Dosage: ON DAYS 1 AND 2
     Route: 065
  3. RITUXIMAB. [Suspect]
     Active Substance: RITUXIMAB
     Indication: CHRONIC LYMPHOCYTIC LEUKAEMIA
     Dosage: FOR THE FIRST COURSE
     Route: 042

REACTIONS (21)
  - Pneumonia [Unknown]
  - Skin infection [Unknown]
  - Neutropenia [Unknown]
  - Febrile neutropenia [Unknown]
  - Acute kidney injury [Unknown]
  - Autoimmune haemolytic anaemia [Unknown]
  - Sepsis [Unknown]
  - Infusion related reaction [Unknown]
  - Neuropathy peripheral [Unknown]
  - Rash [Unknown]
  - Anaemia [Unknown]
  - Pancytopenia [Unknown]
  - Tachycardia [Unknown]
  - Infection [Fatal]
  - Thrombocytopenia [Unknown]
  - Herpes zoster [Unknown]
  - Acute respiratory distress syndrome [Unknown]
  - Dermatitis exfoliative [Unknown]
  - Pneumocystis jirovecii pneumonia [Unknown]
  - Oropharyngeal candidiasis [Unknown]
  - Haemolysis [Unknown]
